FAERS Safety Report 4415284-3 (Version None)
Quarter: 2004Q3

REPORT INFORMATION
  Report Type: 
  Country: None (occurrence: None)
  Receive Date: 20040730
  Receipt Date: 20040725
  Transmission Date: 20050211
  Serious: Yes (Hospitalization)
  Sender: FDA-Public Use
  Company Number: 04P-008-0263798-00

PATIENT
  Age: 48 Year
  Sex: Male

DRUGS (4)
  1. ERYTHROMYCIN ETHLSUCCINATE [Suspect]
     Indication: OTITIS MEDIA
     Dosage: 800 MG, 2 IN 1D
     Dates: start: 20040529, end: 20040604
  2. ERYTHROMYCIN ETHLSUCCINATE [Suspect]
     Indication: TOOTH INFECTION
     Dosage: 800 MG, 2 IN 1D
     Dates: start: 20040529, end: 20040604
  3. METRONIDAZOLE [Concomitant]
  4. SERETIDE [Concomitant]

REACTIONS (10)
  - ASTHENIA [None]
  - CONFUSIONAL STATE [None]
  - DEHYDRATION [None]
  - DIZZINESS [None]
  - DYSPNOEA [None]
  - HALLUCINATION [None]
  - HOT FLUSH [None]
  - HYPERHIDROSIS [None]
  - TACHYCARDIA [None]
  - TREMOR [None]
